FAERS Safety Report 14145543 (Version 3)
Quarter: 2025Q2

REPORT INFORMATION
  Report Type: Report from Study
  Country: CH (occurrence: CH)
  Receive Date: 20171031
  Receipt Date: 20250508
  Transmission Date: 20250717
  Serious: Yes (Other)
  Sender: BAYER HEALTHCARE PHARMACEUTICALS INC.
  Company Number: CH-BAYER-2017-202593

PATIENT
  Sex: Male

DRUGS (1)
  1. ANTIHEMOPHILIC FACTOR, HUMAN RECOMBINANT [Suspect]
     Active Substance: ANTIHEMOPHILIC FACTOR, HUMAN RECOMBINANT

REACTIONS (2)
  - Haemorrhage [None]
  - Drug level below therapeutic [None]
